FAERS Safety Report 19351400 (Version 3)
Quarter: 2021Q4

REPORT INFORMATION
  Report Type: Report from Study
  Country: US (occurrence: US)
  Receive Date: 20210531
  Receipt Date: 20211216
  Transmission Date: 20220303
  Serious: Yes (Death, Other)
  Sender: FDA-Public Use
  Company Number: US-ACADIA PHARMACEUTICALS INC.-ACA-2021-PIM-001799

PATIENT
  Age: 85 Year
  Sex: Male
  Weight: 75 kg

DRUGS (7)
  1. NUPLAZID [Suspect]
     Active Substance: PIMAVANSERIN TARTRATE
     Indication: Parkinson^s disease
     Dosage: 34 MILLIGRAM, QD
     Route: 048
     Dates: start: 20210423, end: 20210514
  2. NUPLAZID [Suspect]
     Active Substance: PIMAVANSERIN TARTRATE
     Indication: Hallucination
  3. NUPLAZID [Suspect]
     Active Substance: PIMAVANSERIN TARTRATE
     Indication: Delusion
  4. CARBIDOPA\LEVODOPA [Concomitant]
     Active Substance: CARBIDOPA\LEVODOPA
  5. WARFARIN SODIUM [Concomitant]
     Active Substance: WARFARIN SODIUM
     Dosage: 3 MILLIGRAM
  6. WARFARIN SODIUM [Concomitant]
     Active Substance: WARFARIN SODIUM
     Dosage: 6 MILLIGRAM
  7. DONEPEZIL [Concomitant]
     Active Substance: DONEPEZIL

REACTIONS (15)
  - Dementia [Recovered/Resolved]
  - Insomnia [Recovered/Resolved]
  - Tremor [Unknown]
  - Back pain [Recovered/Resolved]
  - Dyspnoea [Unknown]
  - Confusional state [Unknown]
  - Dysstasia [Unknown]
  - Arthralgia [Recovered/Resolved]
  - Pain in extremity [Recovered/Resolved]
  - Balance disorder [Recovered/Resolved]
  - Discomfort [Recovered/Resolved]
  - Delusion [Unknown]
  - Drug ineffective [Unknown]
  - Fall [Unknown]
  - Hallucination, visual [Recovered/Resolved]

NARRATIVE: CASE EVENT DATE: 20210429
